FAERS Safety Report 15860363 (Version 2)
Quarter: 2019Q1

REPORT INFORMATION
  Report Type: Spontaneous
  Country: JM (occurrence: JM)
  Receive Date: 20190123
  Receipt Date: 20190211
  Transmission Date: 20190417
  Serious: Yes (Death, Life-Threatening)
  Sender: FDA-Public Use
  Company Number: PHHY2019JM015382

PATIENT
  Age: 4 Year
  Sex: Female

DRUGS (3)
  1. ASPIRIN. [Concomitant]
     Active Substance: ASPIRIN
     Indication: PRODUCT USED FOR UNKNOWN INDICATION
     Dosage: UNK
     Route: 065
  2. PANADOL [Concomitant]
     Active Substance: ACETAMINOPHEN
     Indication: PRODUCT USED FOR UNKNOWN INDICATION
     Dosage: UNK
     Route: 065
  3. CATAFLAM [Suspect]
     Active Substance: DICLOFENAC POTASSIUM
     Indication: DENGUE FEVER
     Dosage: UNK
     Route: 065
     Dates: start: 20181214

REACTIONS (11)
  - Influenza [Unknown]
  - Anal incontinence [Not Recovered/Not Resolved]
  - Haematemesis [Fatal]
  - Vomiting [Fatal]
  - Pyrexia [Unknown]
  - Cough [Unknown]
  - Pain [Fatal]
  - Dengue fever [Fatal]
  - Dengue haemorrhagic fever [Fatal]
  - Asthenia [Fatal]
  - Brain injury [Not Recovered/Not Resolved]

NARRATIVE: CASE EVENT DATE: 20181214
